FAERS Safety Report 9739497 (Version 1)
Quarter: 2013Q4

REPORT INFORMATION
  Report Type: Spontaneous
  Country: US (occurrence: US)
  Receive Date: 20131209
  Receipt Date: 20131209
  Transmission Date: 20140711
  Serious: Yes (Hospitalization)
  Sender: FDA-Public Use
  Company Number: US-BAYER-2013-148710

PATIENT
  Age: 41 Year
  Sex: Female
  Weight: 87.53 kg

DRUGS (9)
  1. YASMIN [Suspect]
  2. VANIQA [Concomitant]
     Indication: HIRSUTISM
     Dosage: 13.9 %, UNK
     Route: 061
  3. SUCLOR [Concomitant]
     Route: 048
  4. AMOXICILLIN [Concomitant]
     Indication: SINUSITIS
     Dosage: 500 MG, UNK
     Dates: start: 20071127
  5. DICYCLOMINE [Concomitant]
     Dosage: 10 MG, UNK
     Route: 048
  6. PEPCID [Concomitant]
     Dosage: 40 MG, UNK
  7. FLEXERIL [Concomitant]
     Indication: FIBROMYALGIA
     Dosage: 10 MG, UNK
  8. VICODIN [Concomitant]
  9. MOTRIN [Concomitant]
     Indication: PAIN

REACTIONS (1)
  - Pulmonary embolism [None]
